FAERS Safety Report 9276052 (Version 1)
Quarter: 2012Q4

REPORT INFORMATION
  Report Type: Spontaneous
  Country: US (occurrence: None)
  Receive Date: 20121109
  Receipt Date: 20121109
  Transmission Date: 20130627
  Serious: Yes (Death, Hospitalization)
  Sender: FDA-Public Use
  Company Number: 2012S1000449

PATIENT
  Age: 63 Year
  Sex: Male

DRUGS (14)
  1. CUBICIN [Suspect]
     Indication: DRUG USE FOR UNKNOWN INDICATION
     Dosage: 580 MG;UNK; IVPB
     Route: 041
     Dates: start: 20120430, end: 20120502
  2. ROSUVASTATIN [Suspect]
     Indication: ARDS
     Dosage: 40 MG ; X1; PO
     Route: 048
     Dates: start: 20120419, end: 20120530
  3. ROSUVASTATIN [Suspect]
     Indication: SEPSIS
     Dosage: 40 MG ; X1; PO
     Route: 048
     Dates: start: 20120419, end: 20120530
  4. ALBUMIN HUMAN [Concomitant]
  5. CASPOFUNGIN [Concomitant]
  6. CHLOROTHIAZIDE [Concomitant]
  7. FERROUS SULFATE [Concomitant]
  8. ATROVENT [Concomitant]
  9. LACTULOSE [Concomitant]
  10. LEVOSALBUTAMOL [Concomitant]
  11. LEVOFLOXACIN [Concomitant]
  12. MEROPENEM [Concomitant]
  13. FLAGYL [Concomitant]
  14. VANCOMYCIN [Concomitant]

REACTIONS (10)
  - Hypotension [None]
  - Drug interaction [None]
  - Rhabdomyolysis [None]
  - Refractory cytopenia with unilineage dysplasia [None]
  - Encephalopathy [None]
  - Respiratory distress [None]
  - Condition aggravated [None]
  - Aspiration [None]
  - Septic shock [None]
  - Haemorrhage [None]
